FAERS Safety Report 14599795 (Version 1)
Quarter: 2018Q1

REPORT INFORMATION
  Report Type: Spontaneous
  Country: None (occurrence: US)
  Receive Date: 20180305
  Receipt Date: 20180305
  Transmission Date: 20180509
  Serious: Yes (Hospitalization)
  Sender: FDA-Public Use
  Company Number: US-MEDAC PHARMA, INC.-2042972

PATIENT
  Age: 54 Year
  Sex: Female
  Weight: 65.3 kg

DRUGS (7)
  1. RELPAX [Concomitant]
     Active Substance: ELETRIPTAN HYDROBROMIDE
  2. ADVIL [Concomitant]
     Active Substance: IBUPROFEN
  3. VITAMIN D [Concomitant]
     Active Substance: CHOLECALCIFEROL
  4. COSENTYX [Concomitant]
     Active Substance: SECUKINUMAB
  5. FOLIC ACID. [Concomitant]
     Active Substance: FOLIC ACID
  6. MECLIZINE [Concomitant]
     Active Substance: MECLIZINE HYDROCHLORIDE
  7. RASUVO [Suspect]
     Active Substance: METHOTREXATE SODIUM
     Indication: PSORIATIC ARTHROPATHY
     Dates: start: 201612, end: 201710

REACTIONS (3)
  - Weight decreased [Unknown]
  - Pneumonitis [Recovered/Resolved]
  - Pneumonia [Recovered/Resolved]
